FAERS Safety Report 5536962-9 (Version None)
Quarter: 2007Q4

REPORT INFORMATION
  Report Type: 
  Country: None (occurrence: None)
  Receive Date: 20071204
  Receipt Date: 20071128
  Transmission Date: 20080405
  Serious: Yes (Death)
  Sender: FDA-Public Use
  Company Number: 2007-168324-NL

PATIENT
  Age: 48 Year
  Sex: Male

DRUGS (10)
  1. DANAPAROID SODIUM [Suspect]
     Indication: THROMBOCYTOPENIA
     Dosage: SUBCUTANEOUS
     Route: 058
     Dates: start: 20071001, end: 20071010
  2. FONDAPARINUX SODIUM [Concomitant]
  3. HEPARIN [Concomitant]
  4. FUROSEMIDE [Concomitant]
  5. MIDAZOLAM HYDROCHLORIDE [Concomitant]
  6. REMIFENTANIL HYDROCHLORIDE [Concomitant]
  7. OMEPRAZOLE [Concomitant]
  8. NICARDIPINE HYDROCHLORIDE [Concomitant]
  9. CEFOTAXIME [Concomitant]
  10. FLUMAZENIL [Concomitant]

REACTIONS (3)
  - CEREBRAL HAEMORRHAGE [None]
  - CEREBRAL ISCHAEMIA [None]
  - COMA [None]
